FAERS Safety Report 11181589 (Version 1)
Quarter: 2015Q2

REPORT INFORMATION
  Report Type: Spontaneous
  Country: AT (occurrence: AT)
  Receive Date: 20150611
  Receipt Date: 20150611
  Transmission Date: 20150821
  Serious: Yes (Death)
  Sender: FDA-Public Use
  Company Number: AT-INCYTE CORPORATION-2015IN002540

PATIENT
  Age: 72 Year
  Sex: Male

DRUGS (3)
  1. AZACITIDINE. [Concomitant]
     Active Substance: AZACITIDINE
     Indication: PRODUCT USED FOR UNKNOWN INDICATION
     Dosage: UNK
     Route: 065
  2. AZACITIDINE. [Concomitant]
     Active Substance: AZACITIDINE
     Route: 065
  3. JAKAFI [Suspect]
     Active Substance: RUXOLITINIB
     Indication: CHRONIC MYELOMONOCYTIC LEUKAEMIA
     Dosage: 20 MG, BID
     Route: 048
     Dates: start: 201208

REACTIONS (3)
  - Chronic myelomonocytic leukaemia [Fatal]
  - No therapeutic response [Unknown]
  - Off label use [Unknown]
